FAERS Safety Report 9135738 (Version 1)
Quarter: 2013Q1

REPORT INFORMATION
  Report Type: Spontaneous
  Country: JP (occurrence: JP)
  Receive Date: 20130304
  Receipt Date: 20130304
  Transmission Date: 20140127
  Serious: Yes (Death, Hospitalization)
  Sender: FDA-Public Use
  Company Number: JP-PFIZER INC-2013073708

PATIENT
  Age: 76 Year
  Sex: Female

DRUGS (2)
  1. LYRICA [Suspect]
     Indication: PAIN IN EXTREMITY
     Dosage: 25 MG/DAY
     Route: 048
  2. LYRICA [Suspect]
     Indication: HYPOAESTHESIA

REACTIONS (2)
  - Pneumonia aspiration [Fatal]
  - Fall [Recovering/Resolving]
